FAERS Safety Report 6651381-X (Version None)
Quarter: 2010Q1

REPORT INFORMATION
  Report Type: 
  Country: None (occurrence: None)
  Receive Date: 20100325
  Receipt Date: 20100318
  Transmission Date: 20100710
  Serious: Yes (Hospitalization)
  Sender: FDA-Public Use
  Company Number: MX-ROCHE-572141

PATIENT
  Sex: Female
  Weight: 96 kg

DRUGS (11)
  1. TOCILIZUMAB [Suspect]
     Indication: RHEUMATOID ARTHRITIS
     Dosage: DOSAGE FORM: INFUSION SOLUTION; TOTAL MONTHLY DOSE: 291.2MG
     Route: 042
     Dates: start: 20050629, end: 20080623
  2. TOCILIZUMAB [Suspect]
     Route: 042
     Dates: start: 20090622
  3. TOCILIZUMAB [Suspect]
     Route: 042
     Dates: start: 20090122
  4. TOCILIZUMAB [Suspect]
     Route: 042
     Dates: start: 20090819
  5. TOCILIZUMAB [Suspect]
     Route: 042
     Dates: start: 20091003
  6. BLINDED TOCILIZUMAB [Suspect]
     Indication: RHEUMATOID ARTHRITIS
     Dosage: DOSAGE FORM: INFUSION, SOLUTION. BLINDED TREATMENT COMPLETE.
     Route: 042
  7. METHOTREXATE [Suspect]
     Indication: DRUG USE FOR UNKNOWN INDICATION
     Route: 048
     Dates: start: 20030302
  8. PREDNISONE [Suspect]
     Indication: DRUG USE FOR UNKNOWN INDICATION
     Dosage: REPORTED: CPT 26 JAN 2008.
     Route: 048
     Dates: start: 20040115
  9. DICLOFENAC [Concomitant]
     Route: 048
     Dates: start: 20050101
  10. ENALAPRIL MALEATE [Concomitant]
     Dates: start: 19910701
  11. METOPROLOL [Concomitant]
     Dates: start: 20070917

REACTIONS (2)
  - ABDOMINAL PAIN [None]
  - DIVERTICULAR PERFORATION [None]
